FAERS Safety Report 6170500-5 (Version None)
Quarter: 2009Q2

REPORT INFORMATION
  Report Type: 
  Country: None (occurrence: None)
  Receive Date: 20090427
  Receipt Date: 20090427
  Transmission Date: 20091009
  Serious: Yes (Life-Threatening, Hospitalization)
  Sender: FDA-Public Use
  Company Number: None

PATIENT
  Sex: Male
  Weight: 90.8 kg

DRUGS (5)
  1. DIATRIZOATE MEGLUMINE [Suspect]
     Indication: COMPUTERISED TOMOGRAM
     Dosage: 20ML PO 30 MIN PRIOR TO PROCEDURE
     Route: 048
     Dates: start: 20090101
  2. RANITIDINE [Concomitant]
  3. MYCOPHENOLATE MOFETIL [Concomitant]
  4. PREDNISONE [Concomitant]
  5. WSS [Concomitant]

REACTIONS (4)
  - DIZZINESS [None]
  - LOSS OF CONSCIOUSNESS [None]
  - NAUSEA [None]
  - VOMITING [None]
